FAERS Safety Report 10233423 (Version 2)
Quarter: 2014Q2

REPORT INFORMATION
  Report Type: Report from Study
  Country: DE (occurrence: DE)
  Receive Date: 20140612
  Receipt Date: 20140626
  Transmission Date: 20141212
  Serious: Yes (Hospitalization, Other)
  Sender: FDA-Public Use
  Company Number: DE-TEVA-486589GER

PATIENT
  Age: 69 Year
  Sex: Male
  Weight: 86 kg

DRUGS (18)
  1. LONQUEX [Suspect]
     Indication: NEUTROPENIA
     Dosage: LAST DOSE PRIOR AE: 28-APR-2014
     Dates: start: 20140304
  2. VINCRISTINE [Suspect]
     Indication: NON-HODGKIN^S LYMPHOMA
     Dosage: LAST DOSE PRIOR AE: 28-APR-2014
     Route: 042
     Dates: start: 20140304
  3. DOXORUBICIN [Suspect]
     Indication: NON-HODGKIN^S LYMPHOMA
     Dosage: LAST DOSE PRIOR AE: 28-APR-2014
     Route: 042
     Dates: start: 20140304
  4. CYCLOPHOSPHAMIDE [Concomitant]
     Indication: NON-HODGKIN^S LYMPHOMA
     Dosage: LAST DOSE PRIOR AE: 28-APR-2014
     Route: 042
     Dates: start: 20140304
  5. DEXRAZOXANE [Concomitant]
     Indication: NON-HODGKIN^S LYMPHOMA
     Dosage: LAST DOSE PRIOR AE: 28-APR-2014
     Route: 042
     Dates: start: 20140304
  6. RITUXIMAB [Concomitant]
     Indication: NON-HODGKIN^S LYMPHOMA
     Dosage: LAST DOSE PRIOR AE: 31-MAR-2014
     Route: 042
     Dates: start: 20140225
  7. ASS [Concomitant]
     Indication: CORONARY ARTERY DISEASE
     Dosage: 100 MILLIGRAM DAILY;
     Route: 048
     Dates: start: 20090514
  8. SIMVAHEXAL [Concomitant]
     Indication: HYPERTENSION
     Dosage: 40 MILLIGRAM DAILY;
     Route: 048
     Dates: start: 20050509
  9. GLIMEPIRIDE [Concomitant]
     Indication: DIABETES MELLITUS
     Dosage: 5 MILLIGRAM DAILY;
     Route: 048
     Dates: start: 20140224
  10. VALSARTAN [Concomitant]
     Indication: HYPERTENSION
     Dosage: 160 MILLIGRAM DAILY;
     Route: 048
     Dates: start: 20140224
  11. AMLOBESILAT [Concomitant]
     Indication: HYPERTENSION
     Dosage: 5 MILLIGRAM DAILY;
     Route: 048
     Dates: start: 20090515
  12. BISOPROLOL [Concomitant]
     Indication: HYPERTENSION
     Dosage: 5 MILLIGRAM DAILY;
     Route: 048
     Dates: start: 20090514
  13. METFORMIN [Concomitant]
     Indication: DIABETES MELLITUS
     Dosage: 2000 MILLIGRAM DAILY;
     Route: 048
     Dates: start: 20090509
  14. ALLOPURINOL [Concomitant]
     Indication: DRUG THERAPY
     Dosage: 300 MILLIGRAM DAILY;
     Route: 048
     Dates: start: 20140224
  15. RETACRIT [Concomitant]
     Indication: DRUG THERAPY
     Route: 058
     Dates: start: 20140225
  16. CIPROFLOXACIN [Concomitant]
     Indication: INFECTION
     Dosage: 1000 MILLIGRAM DAILY;
     Route: 048
     Dates: start: 20140225
  17. ACICLOSTAD [Concomitant]
     Indication: ANTIVIRAL PROPHYLAXIS
     Dosage: 1200 MILLIGRAM DAILY;
     Route: 048
     Dates: start: 20140225
  18. ARCOXIA [Concomitant]
     Indication: ANTIINFLAMMATORY THERAPY
     Dosage: 90 MILLIGRAM DAILY;
     Route: 048
     Dates: start: 20140331

REACTIONS (1)
  - Ileus [Recovered/Resolved]
